FAERS Safety Report 5429821-3 (Version None)
Quarter: 2007Q3

REPORT INFORMATION
  Report Type: 
  Country: None (occurrence: None)
  Receive Date: 20070827
  Receipt Date: 20070817
  Transmission Date: 20080115
  Serious: Yes (Hospitalization, Other)
  Sender: FDA-Public Use
  Company Number: 07H-163-0313049-00

PATIENT
  Age: 34 Year
  Sex: Female
  Weight: 68.2 kg

DRUGS (11)
  1. DEXMEDETOMIDINE INJECTION (DEXMEDETOMIDINE HYDROCHLORIDE INJECTION) (D [Suspect]
     Indication: SEDATION
     Dosage: 10 ML, 1 IN 1 HR, INTRAVENOUS
     Route: 042
     Dates: start: 20070802, end: 20070805
  2. ALBUTEROL [Concomitant]
  3. ATROVENT [Concomitant]
  4. AMBIEN [Concomitant]
  5. PROTONIX [Concomitant]
  6. ZOSYN [Concomitant]
  7. SYNTHROID [Concomitant]
  8. POTASSIUM CHLORIDE [Concomitant]
  9. NEXIUM [Concomitant]
  10. ROZEREM [Concomitant]
  11. ATIVAN [Concomitant]

REACTIONS (6)
  - DISEASE RECURRENCE [None]
  - DRUG WITHDRAWAL SYNDROME [None]
  - GRAND MAL CONVULSION [None]
  - INFUSION RELATED REACTION [None]
  - METABOLIC ACIDOSIS [None]
  - OVARIAN CYST [None]
